FAERS Safety Report 25544328 (Version 1)
Quarter: 2025Q3

REPORT INFORMATION
  Report Type: Spontaneous
  Country: US (occurrence: US)
  Receive Date: 20250711
  Receipt Date: 20250711
  Transmission Date: 20251021
  Serious: Yes (Death, Life-Threatening, Hospitalization, Other)
  Sender: BRISTOL-MYERS SQUIBB COMPANY
  Company Number: US-BRISTOL-MYERS SQUIBB COMPANY-2025-096065

PATIENT
  Age: 82 Year
  Sex: Female

DRUGS (1)
  1. POMALYST [Suspect]
     Active Substance: POMALIDOMIDE
     Indication: Plasma cell myeloma
     Route: 048
     Dates: start: 20240528, end: 20250628

REACTIONS (7)
  - Hypoxia [Unknown]
  - Mental status changes [Unknown]
  - Tachycardia [Unknown]
  - Pulse absent [Unknown]
  - Hypotension [Unknown]
  - Cardiac arrest [Fatal]
  - Infection [Unknown]

NARRATIVE: CASE EVENT DATE: 20250601
